FAERS Safety Report 4707705-3 (Version None)
Quarter: 2005Q2

REPORT INFORMATION
  Report Type: 
  Country: None (occurrence: None)
  Receive Date: 20050629
  Receipt Date: 20050510
  Transmission Date: 20051028
  Serious: No
  Sender: FDA-Public Use
  Company Number: 05P-163-0292839-00

PATIENT
  Age: 71 Year
  Sex: Female
  Weight: 63.5036 kg

DRUGS (6)
  1. HUMIRA [Suspect]
     Indication: RHEUMATOID ARTHRITIS
     Dosage: 40 MG, 1 IN 2 WK, SUBCUTANEOUS
     Route: 058
     Dates: start: 20041101
  2. VENLAFAXINE HCL [Concomitant]
  3. BUPROPION HYDROCHLORIDE [Concomitant]
  4. LEVOTHYROXINE SODIUM [Concomitant]
  5. ESOMEPRAZOLE [Concomitant]
  6. TRAMADOL HCL [Concomitant]

REACTIONS (3)
  - DEPRESSED MOOD [None]
  - HEADACHE [None]
  - WEIGHT INCREASED [None]
